FAERS Safety Report 5256524-0 (Version None)
Quarter: 2007Q1

REPORT INFORMATION
  Report Type: 
  Country: None (occurrence: None)
  Receive Date: 20061220
  Receipt Date: 20061027
  Transmission Date: 20070707
  Serious: No
  Sender: FDA-Public Use
  Company Number: 2006RL000392

PATIENT
  Age: 77 Year
  Sex: Male

DRUGS (5)
  1. OMACOR [Suspect]
     Indication: DRUG USE FOR UNKNOWN INDICATION
     Dosage: 1 GM; BID; PO
     Route: 048
     Dates: start: 20060926, end: 20061024
  2. ZESTRIL [Concomitant]
  3. MAXZIDE [Concomitant]
  4. PREVACID [Concomitant]
  5. RED YEAST RICE [Concomitant]

REACTIONS (1)
  - NAUSEA [None]
